FAERS Safety Report 12791686 (Version 1)
Quarter: 2016Q3

REPORT INFORMATION
  Report Type: Report from Study
  Country: ZA (occurrence: ZA)
  Receive Date: 20160929
  Receipt Date: 20160929
  Transmission Date: 20161109
  Serious: Yes (Death, Other)
  Sender: FDA-Public Use
  Company Number: ZA-AMGEN-ZAFSL2016130855

PATIENT
  Age: 64 Year
  Sex: Male

DRUGS (1)
  1. ARANESP [Suspect]
     Active Substance: DARBEPOETIN ALFA
     Indication: PRODUCT USED FOR UNKNOWN INDICATION
     Dosage: 60 UNK, QWK
     Route: 058
     Dates: start: 201210, end: 20160914

REACTIONS (2)
  - Death [Fatal]
  - Dialysis [Unknown]

NARRATIVE: CASE EVENT DATE: 20160913
